FAERS Safety Report 6242424-6 (Version None)
Quarter: 2009Q2

REPORT INFORMATION
  Report Type: 
  Country: None (occurrence: None)
  Receive Date: 20090624
  Receipt Date: 20090617
  Transmission Date: 20091009
  Serious: Yes (Hospitalization)
  Sender: FDA-Public Use
  Company Number: US-B.I. PHARMACEUTICALS,INC./RIDGEFIELD-2009-BP-07370BP

PATIENT
  Age: 73 Year
  Sex: Female

DRUGS (15)
  1. SPIRIVA [Suspect]
     Indication: CHRONIC OBSTRUCTIVE PULMONARY DISEASE
     Dosage: 18 MCG
     Route: 055
     Dates: start: 20040101
  2. ACTONEL [Suspect]
     Route: 048
     Dates: start: 20090514
  3. VYTORIN [Suspect]
     Route: 048
  4. PHENOBARBITAL TAB [Concomitant]
     Indication: CONVULSION
  5. SINGULAIR [Concomitant]
     Indication: MULTIPLE ALLERGIES
  6. ZYRTEC [Concomitant]
     Indication: MULTIPLE ALLERGIES
  7. OXYGEN [Concomitant]
     Indication: CHRONIC OBSTRUCTIVE PULMONARY DISEASE
  8. CLONIDINE [Concomitant]
     Indication: HYPERTENSION
  9. VIVAGLOBIN [Concomitant]
     Indication: IMMUNODEFICIENCY
     Route: 058
  10. DIOVAN [Concomitant]
     Indication: HYPERTENSION
  11. NORVASC [Concomitant]
     Indication: HYPERTENSION
  12. PREMARIN [Concomitant]
     Indication: MENOPAUSE
  13. OMEPRAZOLE [Concomitant]
     Indication: GASTROOESOPHAGEAL REFLUX DISEASE
  14. RANITIDINE [Concomitant]
     Indication: GASTROOESOPHAGEAL REFLUX DISEASE
  15. VISTERAL [Concomitant]
     Indication: ANXIETY

REACTIONS (13)
  - ASTHENIA [None]
  - BLOOD PRESSURE INCREASED [None]
  - BRONCHITIS [None]
  - DYSPNOEA [None]
  - FREQUENT BOWEL MOVEMENTS [None]
  - IMMUNODEFICIENCY [None]
  - MUSCLE SPASMS [None]
  - MUSCULOSKELETAL DISCOMFORT [None]
  - MUSCULOSKELETAL PAIN [None]
  - NAUSEA [None]
  - POLLAKIURIA [None]
  - RENAL DISORDER [None]
  - VOMITING [None]
